FAERS Safety Report 16107081 (Version 2)
Quarter: 2019Q2

REPORT INFORMATION
  Report Type: Spontaneous
  Country: US (occurrence: US)
  Receive Date: 20190322
  Receipt Date: 20190415
  Transmission Date: 20190711
  Serious: Yes (Death, Hospitalization)
  Sender: FDA-Public Use
  Company Number: US-ASTRAZENECA-2019SE44305

PATIENT
  Age: 23344 Day
  Sex: Female
  Weight: 49 kg

DRUGS (1)
  1. TAGRISSO [Suspect]
     Active Substance: OSIMERTINIB
     Indication: NON-SMALL CELL LUNG CANCER
     Route: 048
     Dates: start: 2018, end: 20181201

REACTIONS (5)
  - Cough [Fatal]
  - Dyspnoea [Not Recovered/Not Resolved]
  - Pain [Fatal]
  - Weight decreased [Fatal]
  - Pneumonitis [Fatal]

NARRATIVE: CASE EVENT DATE: 20180915
